FAERS Safety Report 6217348-0 (Version None)
Quarter: 2009Q2

REPORT INFORMATION
  Report Type: 
  Country: None (occurrence: None)
  Receive Date: 20090608
  Receipt Date: 20080919
  Transmission Date: 20091009
  Serious: Yes (Other)
  Sender: FDA-Public Use
  Company Number: A0736960A

PATIENT
  Age: 62 Year
  Sex: Male
  Weight: 72.7 kg

DRUGS (3)
  1. WELLBUTRIN XL [Suspect]
     Indication: DEPRESSION
     Dosage: 150MG PER DAY
     Route: 048
     Dates: start: 20080703, end: 20080704
  2. LORAZEPAM [Concomitant]
     Indication: ANXIETY
     Dosage: .5MG TWICE PER DAY
     Route: 048
     Dates: start: 20080625, end: 20080716
  3. LEVOTHYROXINE [Concomitant]
     Indication: HYPOTHYROIDISM

REACTIONS (1)
  - LIP SWELLING [None]
